FAERS Safety Report 8617744-8 (Version None)
Quarter: 2012Q3

REPORT INFORMATION
  Report Type: 
  Country: None (occurrence: None)
  Receive Date: 20120824
  Receipt Date: 20120210
  Transmission Date: 20120928
  Serious: No
  Sender: FDA-Public Use
  Company Number: US-ASTRAZENECA-2012SE04520

PATIENT
  Age: 64 Year
  Sex: Female
  Weight: 97.5 kg

DRUGS (5)
  1. LISINOPRIL [Concomitant]
     Indication: HYPERTENSION
  2. THYROID MEDICATIONS [Concomitant]
     Indication: HYPOTHYROIDISM
  3. SYMBICORT [Suspect]
     Indication: CHRONIC OBSTRUCTIVE PULMONARY DISEASE
     Dosage: TOTAL DAILY DOSAGE 80/4.5 ONE PUFF TWICE A DAY
     Route: 055
     Dates: start: 20111110, end: 20120115
  4. INSULIN LANTIS [Concomitant]
     Indication: DIABETES MELLITUS
  5. SYMBICORT [Suspect]
     Indication: PLEURISY
     Dosage: TOTAL DAILY DOSAGE 80/4.5 ONE PUFF TWICE A DAY
     Route: 055
     Dates: start: 20111110, end: 20120115

REACTIONS (5)
  - MUSCLE SPASMS [None]
  - OFF LABEL USE [None]
  - GAIT DISTURBANCE [None]
  - ADVERSE DRUG REACTION [None]
  - INFLUENZA LIKE ILLNESS [None]
